FAERS Safety Report 20160223 (Version 16)
Quarter: 2023Q4

REPORT INFORMATION
  Report Type: Report from Study
  Country: GB (occurrence: GB)
  Receive Date: 20211208
  Receipt Date: 20231001
  Transmission Date: 20240110
  Serious: Yes (Hospitalization, Other)
  Sender: FDA-Public Use
  Company Number: GB-NOVARTISPH-NVSC2021GB272850

PATIENT
  Age: 16 Month
  Sex: Male

DRUGS (4)
  1. ZOLGENSMA [Suspect]
     Active Substance: ONASEMNOGENE ABEPARVOVEC-XIOI
     Indication: Spinal muscular atrophy
     Dosage: UNK, ONCE/SINGLE (ONE SINGLE DOSE)
     Route: 042
     Dates: start: 20211124, end: 20211124
  2. ZOLGENSMA [Suspect]
     Active Substance: ONASEMNOGENE ABEPARVOVEC-XIOI
     Dosage: UNK (5.5 ML VIAL)
     Route: 065
  3. ZOLGENSMA [Suspect]
     Active Substance: ONASEMNOGENE ABEPARVOVEC-XIOI
     Dosage: UNK (8.3ML VIAL)
     Route: 065
  4. PREDNISOLONE [Concomitant]
     Active Substance: PREDNISOLONE
     Indication: Product used for unknown indication
     Dosage: UNK
     Route: 065

REACTIONS (28)
  - Bradycardia [Recovering/Resolving]
  - Secretion discharge [Recovering/Resolving]
  - Viral infection [Recovering/Resolving]
  - Vomiting [Recovered/Resolved]
  - Pyrexia [Recovering/Resolving]
  - Infection [Recovering/Resolving]
  - Abdominal discomfort [Not Recovered/Not Resolved]
  - Abdominal pain upper [Not Recovered/Not Resolved]
  - Vomiting [Recovering/Resolving]
  - Diarrhoea [Recovering/Resolving]
  - Feeding intolerance [Recovering/Resolving]
  - Respiratory tract infection [Recovering/Resolving]
  - Rhinovirus infection [Recovering/Resolving]
  - Enterovirus infection [Recovering/Resolving]
  - Laryngomalacia [Unknown]
  - Heart rate irregular [Not Recovered/Not Resolved]
  - Cough [Not Recovered/Not Resolved]
  - Eye movement disorder [Unknown]
  - Head banging [Unknown]
  - Cortisol decreased [Recovering/Resolving]
  - Dyspnoea [Unknown]
  - Discomfort [Unknown]
  - Abdominal distension [Unknown]
  - Aspartate aminotransferase increased [Not Recovered/Not Resolved]
  - Troponin increased [Not Recovered/Not Resolved]
  - Alanine aminotransferase increased [Not Recovered/Not Resolved]
  - Drug ineffective [Unknown]
  - Off label use [Unknown]

NARRATIVE: CASE EVENT DATE: 20211127
